FAERS Safety Report 4409988-6 (Version None)
Quarter: 2004Q3

REPORT INFORMATION
  Report Type: 
  Country: None (occurrence: None)
  Receive Date: 20040728
  Receipt Date: 20040526
  Transmission Date: 20050211
  Serious: Yes (Death, Hospitalization)
  Sender: FDA-Public Use
  Company Number: CA-ROCHE-369172

PATIENT
  Age: 75 Year
  Sex: Male
  Weight: 70 kg

DRUGS (7)
  1. CAPECITABINE [Suspect]
     Indication: COLON CANCER
     Dosage: TWO WEEK TREATMENT AND ONE WEEK REST.
     Route: 048
     Dates: start: 20040506, end: 20040520
  2. OXALIPLATIN (AS COMPARATOR) [Suspect]
     Indication: COLON CANCER
     Route: 042
     Dates: start: 20040506, end: 20040506
  3. INSULIN [Concomitant]
     Dates: start: 20040522, end: 20040526
  4. PROCHLORPERAZINE [Concomitant]
     Dates: start: 20040506, end: 20040526
  5. IMODIUM [Concomitant]
     Dates: start: 20040506, end: 20040526
  6. SULCRATE [Concomitant]
     Dates: start: 20040506, end: 20040526
  7. ONDANSETRON HCL [Concomitant]
     Dates: start: 20040504, end: 20040504

REACTIONS (7)
  - ACIDOSIS [None]
  - CARDIAC ARREST [None]
  - ENTERITIS [None]
  - HYPERGLYCAEMIA [None]
  - HYPOTENSION [None]
  - INTESTINAL PERFORATION [None]
  - SEPSIS [None]
